FAERS Safety Report 25756085 (Version 2)
Quarter: 2025Q4

REPORT INFORMATION
  Report Type: Report from Study
  Country: US (occurrence: US)
  Receive Date: 20250903
  Receipt Date: 20251021
  Transmission Date: 20260117
  Serious: Yes (Other)
  Sender: PFIZER
  Company Number: US-PFIZER INC-202500057043

PATIENT
  Age: 87 Year
  Sex: Male

DRUGS (1)
  1. VYNDAQEL [Suspect]
     Active Substance: TAFAMIDIS MEGLUMINE
     Dosage: 80 MG, 1X/DAY (20 MG CAPSULE - TAKE 4 CAPSULES PO ONCE DAILY)
     Route: 048
     Dates: start: 202402

REACTIONS (3)
  - Arrhythmia [Unknown]
  - Oedema peripheral [Recovering/Resolving]
  - Hypotension [Recovering/Resolving]
